FAERS Safety Report 23296433 (Version 2)
Quarter: 2024Q1

REPORT INFORMATION
  Report Type: Spontaneous
  Country: US (occurrence: US)
  Receive Date: 20231214
  Receipt Date: 20240110
  Transmission Date: 20240410
  Serious: Yes (Other)
  Sender: FDA-Public Use
  Company Number: US-ABBVIE-5538178

PATIENT
  Age: 60 Year
  Sex: Male
  Weight: 92.98 kg

DRUGS (2)
  1. SYNTHROID [Suspect]
     Active Substance: LEVOTHYROXINE SODIUM
     Indication: Product used for unknown indication
     Dosage: 150 2X PER WEEK AND 175 5X PER WEEK
     Route: 048
     Dates: start: 200610
  2. MINERALS\VITAMINS [Suspect]
     Active Substance: MINERALS\VITAMINS
     Indication: Product used for unknown indication
     Dosage: PRESERVISION AREDS-2 VITAMINS
     Route: 065

REACTIONS (5)
  - Neck dissection [Unknown]
  - Malabsorption [Recovered/Resolved]
  - Blood thyroid stimulating hormone abnormal [Recovered/Resolved]
  - Thyroglobulin present [Recovered/Resolved]
  - Age-related macular degeneration [Recovered/Resolved]

NARRATIVE: CASE EVENT DATE: 20090401
